FAERS Safety Report 7872404-6 (Version None)
Quarter: 2011Q4

REPORT INFORMATION
  Report Type: 
  Country: None (occurrence: None)
  Receive Date: 20111030
  Receipt Date: 20110318
  Transmission Date: 20120403
  Serious: No
  Sender: FDA-Public Use
  Company Number: US-AMGEN-USASP2011015006

PATIENT
  Sex: Female

DRUGS (11)
  1. IRON [Concomitant]
     Dosage: 18 MG, UNK
  2. CYMBALTA [Concomitant]
     Dosage: 20 MG, UNK
  3. TRICOR [Concomitant]
     Dosage: 48 MG, UNK
  4. TOPROL-XL [Concomitant]
     Dosage: 100 MG, UNK
  5. SEROQUEL [Concomitant]
     Dosage: 25 MG, UNK
  6. ENBREL [Suspect]
     Indication: PRODUCT USED FOR UNKNOWN INDICATION
     Dosage: 50 MG, QWK
     Route: 058
  7. DIOVAN HCT [Concomitant]
     Dosage: UNK
  8. DICLOFENAC POTASSIUM [Concomitant]
     Dosage: 25 MG, UNK
  9. ASPIRIN [Concomitant]
     Dosage: 81 MG, UNK
  10. ZOCOR [Concomitant]
     Dosage: 5 MG, UNK
  11. METHOTREXATE [Concomitant]
     Dosage: 2.5 MG, UNK

REACTIONS (2)
  - ANAEMIA [None]
  - WEIGHT INCREASED [None]
